FAERS Safety Report 4476373-0 (Version None)
Quarter: 2004Q4

REPORT INFORMATION
  Report Type: 
  Country: None (occurrence: None)
  Receive Date: 20041016
  Receipt Date: 20041010
  Transmission Date: 20050328
  Serious: Yes (Hospitalization)
  Sender: FDA-Public Use
  Company Number: IL-MERCK-0410ISR00013

PATIENT
  Age: 39 Year
  Sex: Male

DRUGS (4)
  1. ASPIRIN [Concomitant]
     Route: 048
  2. CYANOCOBALAMIN [Concomitant]
     Route: 048
  3. FOLIC ACID [Concomitant]
     Route: 048
  4. VIOXX [Suspect]
     Indication: INTERVERTEBRAL DISC DISPLACEMENT
     Route: 048
     Dates: start: 20020101, end: 20040901

REACTIONS (4)
  - CHEST PAIN [None]
  - DYSPEPSIA [None]
  - HYPOAESTHESIA [None]
  - VISION BLURRED [None]
